FAERS Safety Report 6373227-X (Version None)
Quarter: 2009Q3

REPORT INFORMATION
  Report Type: 
  Country: None (occurrence: None)
  Receive Date: 20090924
  Receipt Date: 20090508
  Transmission Date: 20100115
  Serious: No
  Sender: FDA-Public Use
  Company Number: US-ASTRAZENECA-2009UW00597

PATIENT
  Age: 714 Month
  Sex: Female
  Weight: 72.6 kg

DRUGS (4)
  1. SEROQUEL [Suspect]
     Indication: DEPRESSION
     Route: 048
     Dates: start: 20040722
  2. RISPERDAL [Concomitant]
     Dates: start: 20070712, end: 20071024
  3. ZOLOFT [Concomitant]
     Dosage: 50 TO 100 MG
     Dates: start: 20040416, end: 20060724
  4. TRAZODONE HCL [Concomitant]
     Dates: start: 20030213, end: 20040925

REACTIONS (2)
  - DIABETES MELLITUS [None]
  - FALL [None]
